FAERS Safety Report 9820467 (Version 1)
Quarter: 2014Q1

REPORT INFORMATION
  Report Type: Spontaneous
  Country: FR (occurrence: None)
  Receive Date: 20140114
  Receipt Date: 20140114
  Transmission Date: 20141002
  Serious: Yes (Hospitalization)
  Sender: FDA-Public Use
  Company Number: LOC-01197

PATIENT
  Age: 39 Year
  Sex: Female

DRUGS (4)
  1. LOCOID [Suspect]
     Route: 061
     Dates: start: 20130727, end: 20130729
  2. PYOSTACINE [Suspect]
     Route: 048
     Dates: start: 20130727, end: 20130729
  3. NABUCOX [Suspect]
     Route: 048
     Dates: start: 20130727, end: 20130729
  4. FUSIDIC ACID [Suspect]
     Route: 061
     Dates: start: 20130727, end: 20130729

REACTIONS (2)
  - Rash maculo-papular [None]
  - Pruritus [None]
